FAERS Safety Report 7635859-8 (Version None)
Quarter: 2011Q3

REPORT INFORMATION
  Report Type: 
  Country: None (occurrence: None)
  Receive Date: 20110726
  Receipt Date: 20110712
  Transmission Date: 20111222
  Serious: Yes (Other)
  Sender: FDA-Public Use
  Company Number: DE-MYLANLABS-2011S1014491

PATIENT
  Sex: Male

DRUGS (1)
  1. TRAMADOL HCL [Suspect]
     Indication: BACK PAIN
     Route: 048
     Dates: start: 20110711

REACTIONS (5)
  - INCORRECT DOSE ADMINISTERED [None]
  - PARAESTHESIA [None]
  - VERTIGO [None]
  - HYPERHIDROSIS [None]
  - NAUSEA [None]
